FAERS Safety Report 5939614-6 (Version None)
Quarter: 2008Q4

REPORT INFORMATION
  Report Type: 
  Country: None (occurrence: None)
  Receive Date: 20081030
  Receipt Date: 20081030
  Transmission Date: 20090506
  Serious: Yes (Hospitalization, Other)
  Sender: FDA-Public Use
  Company Number: None

PATIENT
  Sex: Male
  Weight: 17 kg

DRUGS (1)
  1. WINRHO [Suspect]
     Indication: AUTOIMMUNE THROMBOCYTOPENIA
     Dosage: 500 UNITS TIMES ONE IV
     Route: 042
     Dates: start: 20081003, end: 20081003

REACTIONS (8)
  - ARTERIAL BRUIT [None]
  - BLOOD LACTATE DEHYDROGENASE INCREASED [None]
  - CHROMATURIA [None]
  - CONTUSION [None]
  - EPISTAXIS [None]
  - HAEMOGLOBIN DECREASED [None]
  - PLATELET COUNT DECREASED [None]
  - TACHYCARDIA [None]
